FAERS Safety Report 15343038 (Version 1)
Quarter: 2018Q3

REPORT INFORMATION
  Report Type: Spontaneous
  Country: US (occurrence: US)
  Receive Date: 20180903
  Receipt Date: 20180903
  Transmission Date: 20181010
  Serious: Yes (Other)
  Sender: FDA-Public Use
  Company Number: US-AUROBINDO-AUR-APL-2018-043352

PATIENT
  Age: 8 Year
  Sex: Male

DRUGS (2)
  1. PREDNISONE. [Suspect]
     Active Substance: PREDNISONE
     Indication: NEPHROTIC SYNDROME
     Dosage: 60 MILLIGRAM, DAILY UNTIL TWO MONTHS.
     Route: 065
  2. PREDNISONE. [Suspect]
     Active Substance: PREDNISONE
     Dosage: 50 MILLIGRAM EVERY OTHER DAY

REACTIONS (9)
  - Gait inability [Recovered/Resolved]
  - Sleep disorder [Recovered/Resolved]
  - Peripheral ischaemia [Unknown]
  - Arterial thrombosis [Unknown]
  - Skin discolouration [Recovered/Resolved]
  - Trigger finger [Recovered/Resolved]
  - Tenderness [Recovered/Resolved]
  - Peripheral coldness [Recovered/Resolved]
  - Pain in extremity [Recovered/Resolved]
